FAERS Safety Report 8294348-0 (Version None)
Quarter: 2012Q2

REPORT INFORMATION
  Report Type: 
  Country: None (occurrence: None)
  Receive Date: 20120418
  Receipt Date: 20120410
  Transmission Date: 20120825
  Serious: Yes (Hospitalization)
  Sender: FDA-Public Use
  Company Number: GB-BRISTOL-MYERS SQUIBB COMPANY-16476525

PATIENT
  Age: 68 Year
  Sex: Female
  Weight: 53 kg

DRUGS (1)
  1. YERVOY [Suspect]
     Dosage: 160MG ON 22FEB12
     Route: 042
     Dates: start: 20120201

REACTIONS (1)
  - LOWER RESPIRATORY TRACT INFECTION [None]
